FAERS Safety Report 16192718 (Version 1)
Quarter: 2019Q2

REPORT INFORMATION
  Report Type: Spontaneous
  Country: BG (occurrence: BG)
  Receive Date: 20190412
  Receipt Date: 20190412
  Transmission Date: 20190711
  Serious: Yes (Hospitalization)
  Sender: FDA-Public Use
  Company Number: PHHY2019BG066575

PATIENT
  Age: 62 Year
  Sex: Male

DRUGS (3)
  1. OSPAMOX [Suspect]
     Active Substance: AMOXICILLIN
     Dosage: UNK UNK, PRN
     Route: 065
     Dates: start: 20190306
  2. OSPAMOX [Suspect]
     Active Substance: AMOXICILLIN
     Indication: PRODUCT USED FOR UNKNOWN INDICATION
     Dosage: UNK UNK, PRN
     Route: 065
  3. OSPAMOX [Suspect]
     Active Substance: AMOXICILLIN
     Dosage: UNK UNK, PRN
     Route: 065
     Dates: start: 201901

REACTIONS (6)
  - Conjunctival haemorrhage [Recovered/Resolved]
  - Swollen tongue [Recovered/Resolved]
  - Cyanosis [Recovered/Resolved]
  - Speech disorder [Recovered/Resolved]
  - Respiration abnormal [Recovered/Resolved]
  - Hypersensitivity [Recovered/Resolved]

NARRATIVE: CASE EVENT DATE: 20190306
